FAERS Safety Report 4277964-2 (Version None)
Quarter: 2004Q1

REPORT INFORMATION
  Report Type: 
  Country: None (occurrence: None)
  Receive Date: 20040120
  Receipt Date: 20040109
  Transmission Date: 20041129
  Serious: Yes (Other)
  Sender: FDA-Public Use
  Company Number: US-JNJFOC-200300804587

PATIENT
  Age: 59 Year
  Sex: Female
  Weight: 66.2252 kg

DRUGS (11)
  1. REMICADE [Suspect]
     Indication: ANKYLOSING SPONDYLITIS
     Dosage: 500 MG, 1 IN8 WEEK, INTRAVENOUS
     Route: 042
     Dates: start: 20010531, end: 20021212
  2. METHOTREXATE SODIUM [Concomitant]
  3. NARCOTICS (ANALGESICS) [Concomitant]
  4. PREDNISONE [Concomitant]
  5. AZULFIDINE [Concomitant]
  6. VOLTAREN [Concomitant]
  7. PRILOSEC [Concomitant]
  8. INDERAL SR (PROPRANOLOL HYDRIOCHLORIDE) TABLETS [Concomitant]
  9. PREMARIN (ESTROGENS CONJUGATED) TABLETS [Concomitant]
  10. PROZAC [Concomitant]
  11. FOLIC ACID (FOLIC ACID) TABLETS [Concomitant]

REACTIONS (1)
  - ARTHRITIS [None]
